FAERS Safety Report 6360921-X (Version None)
Quarter: 2009Q3

REPORT INFORMATION
  Report Type: 
  Country: None (occurrence: None)
  Receive Date: 20090918
  Receipt Date: 20090909
  Transmission Date: 20100115
  Serious: Yes (Hospitalization)
  Sender: FDA-Public Use
  Company Number: PHHY2009FR38419

PATIENT
  Age: 72 Year
  Sex: Male

DRUGS (1)
  1. TRILEPTAL [Suspect]
     Dosage: 600 MG, BID
     Dates: end: 20090629

REACTIONS (5)
  - BLOOD PRESSURE INCREASED [None]
  - CONCUSSION [None]
  - DISTURBANCE IN ATTENTION [None]
  - FALL [None]
  - HYPONATRAEMIA [None]
